FAERS Safety Report 5181078-7 (Version None)
Quarter: 2006Q4

REPORT INFORMATION
  Report Type: 
  Country: None (occurrence: None)
  Receive Date: 20061220
  Receipt Date: 20060614
  Transmission Date: 20070319
  Serious: Yes (Other)
  Sender: FDA-Public Use
  Company Number: PHBS2006JP09074

PATIENT
  Age: 80 Year
  Sex: Male

DRUGS (3)
  1. DIOVAN [Suspect]
     Indication: HYPERTENSION
     Dosage: 40 MG, BID
     Route: 048
     Dates: start: 20020122, end: 20060216
  2. CONIEL [Concomitant]
     Dosage: 4 MG, UNK
     Route: 048
     Dates: start: 20020122
  3. CONIEL [Concomitant]
     Dosage: 18 MG, UNK
     Route: 048
     Dates: start: 20020122

REACTIONS (2)
  - MYELOFIBROSIS [None]
  - THROMBOCYTOPENIA [None]
